FAERS Safety Report 6966001-4 (Version None)
Quarter: 2010Q3

REPORT INFORMATION
  Report Type: 
  Country: None (occurrence: None)
  Receive Date: 20100903
  Receipt Date: 20100826
  Transmission Date: 20110219
  Serious: Yes (Death, Other)
  Sender: FDA-Public Use
  Company Number: US-AMGEN-QUU401287

PATIENT
  Sex: Male

DRUGS (2)
  1. NPLATE [Suspect]
     Indication: IDIOPATHIC THROMBOCYTOPENIC PURPURA
     Dates: start: 20100303, end: 20100316
  2. DECADRON [Concomitant]

REACTIONS (4)
  - DRUG INEFFECTIVE [None]
  - MALNUTRITION [None]
  - PERFORMANCE STATUS DECREASED [None]
  - RESPIRATORY FAILURE [None]
